FAERS Safety Report 5370154-1 (Version None)
Quarter: 2007Q2

REPORT INFORMATION
  Report Type: 
  Country: None (occurrence: None)
  Receive Date: 20070626
  Receipt Date: 20070618
  Transmission Date: 20071010
  Serious: Yes (Hospitalization)
  Sender: FDA-Public Use
  Company Number: US-ELI_LILLY_AND_COMPANY-US200706003882

PATIENT
  Age: 12 Year
  Sex: Male

DRUGS (1)
  1. GLUCAGON [Suspect]
     Indication: DIABETES MELLITUS
     Dosage: UNK, AS NEEDED

REACTIONS (4)
  - DEVICE MALFUNCTION [None]
  - HYPOGLYCAEMIC SEIZURE [None]
  - MEDICATION ERROR [None]
  - PHARMACEUTICAL PRODUCT COMPLAINT [None]
